FAERS Safety Report 22175365 (Version 1)
Quarter: 2023Q2

REPORT INFORMATION
  Report Type: Report from Study
  Country: US (occurrence: US)
  Receive Date: 20230405
  Receipt Date: 20230405
  Transmission Date: 20230722
  Serious: Yes (Hospitalization)
  Sender: FDA-Public Use
  Company Number: US-MYLANLABS-2023M1035694

PATIENT
  Age: 53 Year
  Sex: Female

DRUGS (5)
  1. CLOZAPINE [Suspect]
     Active Substance: CLOZAPINE
     Indication: Product used for unknown indication
     Dosage: UNK (BOUNCING BETWEEN 75MG TO 100MG TWICE PER DAY)
     Route: 048
     Dates: start: 20170528
  2. CLOZAPINE [Suspect]
     Active Substance: CLOZAPINE
     Dosage: UNK (BOUNCING BETWEEN 75MG TO 100MG TWICE PER DAY)
     Route: 048
     Dates: start: 20170630
  3. CLOZAPINE [Suspect]
     Active Substance: CLOZAPINE
     Dosage: 300 MILLIGRAM, QD (AT BEDTIME)
     Route: 048
     Dates: start: 20171005
  4. CLOZAPINE [Suspect]
     Active Substance: CLOZAPINE
     Dosage: UNK (BOUNCING BETWEEN 75MG TO 100MG TWICE PER DAY)
     Route: 048
     Dates: start: 20211104
  5. CLOZAPINE [Suspect]
     Active Substance: CLOZAPINE
     Dosage: 200 MILLIGRAM, BID
     Route: 048
     Dates: start: 20211117

REACTIONS (1)
  - Hospitalisation [Unknown]

NARRATIVE: CASE EVENT DATE: 20230306
